FAERS Safety Report 9937124 (Version 1)
Quarter: 2014Q1

REPORT INFORMATION
  Report Type: Spontaneous
  Country: US (occurrence: US)
  Receive Date: 20140301
  Receipt Date: 20140301
  Transmission Date: 20141002
  Serious: Yes (Life-Threatening, Hospitalization, Other)
  Sender: FDA-Public Use
  Company Number: US-ASTRAZENECA-2014SE14187

PATIENT
  Age: 597 Month
  Sex: Female

DRUGS (10)
  1. SEROQUEL [Suspect]
     Indication: ANXIETY
     Route: 048
     Dates: start: 1995, end: 20140121
  2. DEPAKOTE [Suspect]
     Indication: MAJOR DEPRESSION
     Dosage: 10MG MDD
     Route: 048
     Dates: start: 1989
  3. DEPAKOTE [Suspect]
     Indication: MAJOR DEPRESSION
     Route: 048
     Dates: start: 1989
  4. BLINDED STUDY DRUG [Suspect]
     Indication: HIV INFECTION
     Route: 048
     Dates: start: 20130731
  5. ATIVAN [Suspect]
     Indication: ANXIETY
     Route: 048
     Dates: start: 1995
  6. DALMANE [Suspect]
     Indication: INSOMNIA
     Route: 048
     Dates: start: 1986
  7. ZANTAC [Concomitant]
     Dates: start: 20130731
  8. HYDROCODONE/ ACETAMINOPHEN [Concomitant]
     Dates: start: 20131105
  9. ENALAPRIL [Concomitant]
     Dates: start: 2010
  10. CELECOXIB [Concomitant]
     Dates: start: 201307

REACTIONS (5)
  - Depression [Recovered/Resolved]
  - Anxiety [Recovered/Resolved]
  - HIV infection [Unknown]
  - Dyslipidaemia [Not Recovered/Not Resolved]
  - Drug ineffective [Unknown]
